FAERS Safety Report 5623117-2 (Version None)
Quarter: 2008Q1

REPORT INFORMATION
  Report Type: 
  Country: None (occurrence: None)
  Receive Date: 20080212
  Receipt Date: 20080207
  Transmission Date: 20080703
  Serious: Yes (Hospitalization)
  Sender: FDA-Public Use
  Company Number: A0708810A

PATIENT
  Age: 65 Year
  Sex: Male
  Weight: 67 kg

DRUGS (13)
  1. LAPATINIB [Suspect]
     Dosage: 250MG SIX TIMES PER DAY
     Route: 048
     Dates: start: 20080117, end: 20080123
  2. GEMZAR [Suspect]
     Dosage: 1800MGD CYCLIC
     Route: 042
     Dates: start: 20080117, end: 20080117
  3. BENTYL [Concomitant]
  4. LISINOPRIL [Concomitant]
  5. PERCOCET [Concomitant]
  6. COUMADIN [Concomitant]
  7. DIGOXIN [Concomitant]
  8. LOPRESSOR [Concomitant]
  9. ALPRAZOLAM [Concomitant]
  10. REGLAN [Concomitant]
  11. DICYCLOMINE [Concomitant]
  12. HYDROCODONE BITARTRATE [Concomitant]
  13. MEGACE [Concomitant]

REACTIONS (6)
  - ABDOMINAL PAIN [None]
  - ANOREXIA [None]
  - DEHYDRATION [None]
  - DIARRHOEA [None]
  - NAUSEA [None]
  - PLEURAL EFFUSION [None]
